FAERS Safety Report 19193072 (Version 1)
Quarter: 2021Q2

REPORT INFORMATION
  Report Type: Spontaneous
  Country: JP (occurrence: JP)
  Receive Date: 20210428
  Receipt Date: 20210428
  Transmission Date: 20210717
  Serious: Yes (Hospitalization, Disabling, Other)
  Sender: FDA-Public Use
  Company Number: JP-009507513-2103JPN001667J

PATIENT
  Age: 72 Year
  Sex: Male
  Weight: 84 kg

DRUGS (4)
  1. AMLODIPINE [Suspect]
     Active Substance: AMLODIPINE BESYLATE
     Indication: HYPERTENSION
     Dosage: 5 MILLIGRAM, BID
     Route: 048
     Dates: start: 20191204
  2. ABRAXANE [Suspect]
     Active Substance: PACLITAXEL
     Indication: ADENOSQUAMOUS CELL LUNG CANCER STAGE IV
     Dosage: 190 MILLIGRAM, TWICE EVERY THREE WEEKS
     Route: 041
     Dates: start: 20191204, end: 20200129
  3. KEYTRUDA [Suspect]
     Active Substance: PEMBROLIZUMAB
     Indication: ADENOSQUAMOUS CELL LUNG CANCER STAGE IV
     Dosage: 200 MILLIGRAM, Q3W
     Route: 041
     Dates: start: 20191204, end: 20200115
  4. CARBOPLATIN. [Suspect]
     Active Substance: CARBOPLATIN
     Indication: ADENOSQUAMOUS CELL LUNG CANCER STAGE IV
     Dosage: 650 MILLIGRAM, Q3W
     Route: 041
     Dates: start: 20191204, end: 20200115

REACTIONS (3)
  - Adrenocorticotropic hormone deficiency [Unknown]
  - Adrenal insufficiency [Not Recovered/Not Resolved]
  - Dysphagia [Unknown]

NARRATIVE: CASE EVENT DATE: 2020
